FAERS Safety Report 6905908-0 (Version None)
Quarter: 2010Q3

REPORT INFORMATION
  Report Type: 
  Country: None (occurrence: None)
  Receive Date: 20100804
  Receipt Date: 20100730
  Transmission Date: 20110219
  Serious: Yes (Other)
  Sender: FDA-Public Use
  Company Number: VE-ROCHE-718163

PATIENT
  Sex: Female

DRUGS (2)
  1. PEGASYS [Suspect]
     Indication: HEPATITIS
     Route: 058
     Dates: start: 20090904, end: 20100706
  2. COPEGUS [Concomitant]
     Indication: HEPATITIS
     Route: 048

REACTIONS (5)
  - ANAEMIA [None]
  - GINGIVAL BLEEDING [None]
  - MALAISE [None]
  - NEUTROPENIA [None]
  - PLATELET COUNT DECREASED [None]
